FAERS Safety Report 5874886-8 (Version None)
Quarter: 2008Q3

REPORT INFORMATION
  Report Type: 
  Country: None (occurrence: None)
  Receive Date: 20080904
  Receipt Date: 20080829
  Transmission Date: 20090109
  Serious: Yes (Hospitalization)
  Sender: FDA-Public Use
  Company Number: 2007SP024201

PATIENT
  Age: 70 Year
  Sex: Female
  Weight: 60 kg

DRUGS (9)
  1. PEG-INTRON [Suspect]
     Indication: HEPATITIS C
     Dosage: 80 MCG; QW; SC
     Route: 058
     Dates: start: 20070201, end: 20070201
  2. PEG-INTRON [Suspect]
     Indication: HEPATITIS C
     Dosage: 80 MCG; QW; SC
     Route: 058
     Dates: start: 20070312, end: 20070312
  3. REBETOL [Suspect]
     Indication: HEPATITIS C
     Dosage: 600 MG; QD; PO
     Route: 048
     Dates: start: 20070201, end: 20070206
  4. REBETOL [Suspect]
     Indication: HEPATITIS C
     Dosage: 600 MG; QD; PO
     Route: 048
     Dates: start: 20070312, end: 20070314
  5. AMLODIPINE BESYLATE [Concomitant]
  6. VOGLIBOSE [Concomitant]
  7. EVISTA [Concomitant]
  8. PLATIBIT [Concomitant]
  9. AMARYL [Concomitant]

REACTIONS (3)
  - DRUG ERUPTION [None]
  - UPPER GASTROINTESTINAL HAEMORRHAGE [None]
  - URTICARIA [None]
